FAERS Safety Report 12325496 (Version 3)
Quarter: 2016Q3

REPORT INFORMATION
  Report Type: Spontaneous
  Country: CO (occurrence: CO)
  Receive Date: 20160502
  Receipt Date: 20160817
  Transmission Date: 20161109
  Serious: Yes (Other)
  Sender: FDA-Public Use
  Company Number: CO-AMGEN-COLSP2016054960

PATIENT
  Age: 46 Year
  Sex: Female
  Weight: 55 kg

DRUGS (19)
  1. ENBREL [Suspect]
     Active Substance: ETANERCEPT
     Dosage: 50 MG, WEEKLY
     Route: 058
     Dates: end: 20160126
  2. COLCHICINE. [Concomitant]
     Active Substance: COLCHICINE
     Dosage: UNK, DAILY
  3. LEFLUNOMIDE. [Concomitant]
     Active Substance: LEFLUNOMIDE
     Dosage: UNK, DAILY
  4. ACETYLSALICYLIC ACID [Concomitant]
     Active Substance: ASPIRIN
     Dosage: UNK, DAILY
  5. SULFASALAZINE DELAYED-RELEASE [Concomitant]
     Active Substance: SULFASALAZINE
     Dosage: 1 DF, DAILY (1 TABLET DAILY)
  6. LEFLUNOMIDE. [Concomitant]
     Active Substance: LEFLUNOMIDE
     Dosage: UNK, DAILY
  7. PREDNISOLONE. [Concomitant]
     Active Substance: PREDNISOLONE
     Dosage: 5 MG, DAILY
  8. LEFLUNOMIDE. [Concomitant]
     Active Substance: LEFLUNOMIDE
     Dosage: UNK, DAILY
  9. CALCIUM [Concomitant]
     Active Substance: CALCIUM
     Dosage: UNK, DAILY
  10. ENBREL [Suspect]
     Active Substance: ETANERCEPT
     Indication: RHEUMATOID ARTHRITIS
     Dosage: 50 MG, WEEKLY
     Route: 058
     Dates: start: 201211, end: 20151229
  11. COLCHICINE. [Concomitant]
     Active Substance: COLCHICINE
     Dosage: UNK, DAILY
  12. ACETYLSALICYLIC ACID [Concomitant]
     Active Substance: ASPIRIN
     Dosage: UNK, DAILY
  13. ACETYLSALICYLIC ACID [Concomitant]
     Active Substance: ASPIRIN
     Dosage: UNK, DAILY
  14. FERROUS SULFATE. [Concomitant]
     Active Substance: FERROUS SULFATE
     Dosage: UNK, DAILY
  15. PREDNISOLONE. [Concomitant]
     Active Substance: PREDNISOLONE
     Dosage: 5 MG, DAILY
  16. CALCIUM [Concomitant]
     Active Substance: CALCIUM
     Dosage: UNK, DAILY
  17. PREDNISOLONE. [Concomitant]
     Active Substance: PREDNISOLONE
     Dosage: 5 MG, DAILY
  18. COLCHICINE. [Concomitant]
     Active Substance: COLCHICINE
     Dosage: UNK, DAILY
  19. CALCIUM [Concomitant]
     Active Substance: CALCIUM
     Dosage: UNK, DAILY

REACTIONS (12)
  - Infection [Not Recovered/Not Resolved]
  - Eye disorder [Unknown]
  - Localised infection [Recovering/Resolving]
  - Pterygium [Unknown]
  - Pathogen resistance [Not Recovered/Not Resolved]
  - Hyperkeratosis [Not Recovered/Not Resolved]
  - Purulent discharge [Recovering/Resolving]
  - Decreased immune responsiveness [Unknown]
  - Ocular hyperaemia [Unknown]
  - Cellulitis [Unknown]
  - Foot deformity [Unknown]
  - Eye pain [Unknown]

NARRATIVE: CASE EVENT DATE: 2016
